FAERS Safety Report 15534664 (Version 47)
Quarter: 2020Q4

REPORT INFORMATION
  Report Type: Other
  Country: DE (occurrence: DE)
  Receive Date: 20181022
  Receipt Date: 20201204
  Transmission Date: 20210113
  Serious: Yes (Other)
  Sender: FDA-Public Use
  Company Number: DE-ROCHE-2193244

PATIENT
  Age: 46 Year
  Sex: Female
  Weight: 60 kg

DRUGS (7)
  1. VIGANTOLETTEN [Concomitant]
     Active Substance: CHOLECALCIFEROL
  2. OCREVUS [Suspect]
     Active Substance: OCRELIZUMAB
     Route: 042
     Dates: start: 20191029
  3. OCREVUS [Suspect]
     Active Substance: OCRELIZUMAB
     Indication: RELAPSING-REMITTING MULTIPLE SCLEROSIS
     Route: 042
     Dates: start: 20180927
  4. OCREVUS [Suspect]
     Active Substance: OCRELIZUMAB
     Route: 042
     Dates: start: 20190425
  5. OCREVUS [Suspect]
     Active Substance: OCRELIZUMAB
     Route: 042
     Dates: start: 20181024
  6. OCREVUS [Suspect]
     Active Substance: OCRELIZUMAB
     Route: 042
     Dates: start: 20201001
  7. VIGANTOLETTEN [Concomitant]
     Active Substance: CHOLECALCIFEROL

REACTIONS (38)
  - Pain [Recovered/Resolved]
  - Fatigue [Recovered/Resolved]
  - Initial insomnia [Recovered/Resolved]
  - Feeling hot [Not Recovered/Not Resolved]
  - Fungal skin infection [Recovered/Resolved]
  - Muscular weakness [Recovering/Resolving]
  - Middle insomnia [Recovering/Resolving]
  - Alanine aminotransferase increased [Recovering/Resolving]
  - Sciatica [Recovered/Resolved]
  - Gamma-glutamyltransferase increased [Recovering/Resolving]
  - Ear pain [Recovered/Resolved]
  - Burning sensation [Not Recovered/Not Resolved]
  - Irritability [Recovering/Resolving]
  - Hypoaesthesia [Not Recovered/Not Resolved]
  - Acne [Not Recovered/Not Resolved]
  - Middle insomnia [Recovered/Resolved]
  - Infection [Recovered/Resolved]
  - Restlessness [Recovering/Resolving]
  - Flatulence [Recovered/Resolved]
  - Pruritus [Recovered/Resolved]
  - Headache [Recovered/Resolved]
  - White blood cell count increased [Not Recovered/Not Resolved]
  - Fatigue [Recovered/Resolved]
  - Menstruation irregular [Recovered/Resolved]
  - Epistaxis [Recovered/Resolved]
  - Mole excision [Recovered/Resolved]
  - Upper respiratory tract infection [Recovering/Resolving]
  - Musculoskeletal stiffness [Recovered/Resolved]
  - Weight increased [Recovered/Resolved]
  - Pain [Not Recovered/Not Resolved]
  - Dizziness [Recovered/Resolved]
  - Inappropriate schedule of product administration [Unknown]
  - Urinary tract infection [Recovered/Resolved]
  - Liver function test increased [Not Recovered/Not Resolved]
  - Dizziness [Recovering/Resolving]
  - Gastrointestinal disorder [Recovered/Resolved]
  - Nasopharyngitis [Recovered/Resolved]
  - Depressed mood [Recovering/Resolving]

NARRATIVE: CASE EVENT DATE: 20180927
